FAERS Safety Report 5947499-7 (Version None)
Quarter: 2008Q4

REPORT INFORMATION
  Report Type: 
  Country: None (occurrence: None)
  Receive Date: 20081110
  Receipt Date: 20081104
  Transmission Date: 20090506
  Serious: Yes (Hospitalization)
  Sender: FDA-Public Use
  Company Number: JP-GILEAD-2008-0017559

PATIENT
  Sex: Male

DRUGS (7)
  1. VIREAD [Suspect]
     Indication: HIV INFECTION
     Route: 048
     Dates: start: 20040703
  2. STOCRIN [Concomitant]
     Indication: HIV INFECTION
     Route: 048
     Dates: start: 20011208
  3. EPIVIR [Concomitant]
     Indication: HIV INFECTION
     Route: 048
     Dates: start: 20011208, end: 20040702
  4. EPIVIR [Concomitant]
     Route: 048
     Dates: start: 20040703
  5. KELNAC [Concomitant]
     Indication: HIV INFECTION
     Dates: start: 20070401
  6. VITAMEDIN [Concomitant]
     Indication: HIV INFECTION
     Dates: start: 20070401
  7. URSO 250 [Concomitant]
     Indication: HIV INFECTION
     Dates: start: 20070401

REACTIONS (4)
  - GASTRIC POLYPS [None]
  - GLAUCOMA [None]
  - GLAUCOMATOCYCLITIC CRISES [None]
  - HELICOBACTER INFECTION [None]
